FAERS Safety Report 19763683 (Version 3)
Quarter: 2021Q4

REPORT INFORMATION
  Report Type: Spontaneous
  Country: NL (occurrence: NL)
  Receive Date: 20210830
  Receipt Date: 20211028
  Transmission Date: 20220303
  Serious: Yes (Life-Threatening, Hospitalization, Other)
  Sender: FDA-Public Use
  Company Number: NL-SA-2021SA091016

PATIENT
  Age: 63 Year
  Sex: Female
  Weight: 71.3 kg

DRUGS (27)
  1. PREDNISONE [Suspect]
     Active Substance: PREDNISONE
     Indication: Asthma
     Dosage: 32.5 MILLIGRAM, QD ( (PRE-ANTI-IL-5 TREATMENT))
  2. PREDNISONE [Suspect]
     Active Substance: PREDNISONE
     Indication: Eosinophilic granulomatosis with polyangiitis
     Dosage: UNK (CAUTIOUSLY TAPERED)
  3. PREDNISONE [Suspect]
     Active Substance: PREDNISONE
     Dosage: 30 MG, QD
  4. PREDNISONE [Suspect]
     Active Substance: PREDNISONE
     Dosage: 22.5 MG, QD
  5. PREDNISONE [Suspect]
     Active Substance: PREDNISONE
     Dosage: 20 MILLIGRAM, QD
  6. PREDNISONE [Suspect]
     Active Substance: PREDNISONE
     Dosage: 35 UNK
  7. PREDNISONE [Suspect]
     Active Substance: PREDNISONE
     Dosage: 32.2 MILLIGRAM, QD
  8. DUPIXENT [Suspect]
     Active Substance: DUPILUMAB
     Indication: Asthma
     Dosage: UNK
  9. DUPIXENT [Suspect]
     Active Substance: DUPILUMAB
     Indication: Nasal polyps
     Dosage: 300 MILLIGRAM
     Route: 058
     Dates: start: 20190826, end: 20191218
  10. DUPIXENT [Suspect]
     Active Substance: DUPILUMAB
     Indication: Eosinophilic granulomatosis with polyangiitis
     Dosage: UNK
     Dates: start: 20190911
  11. OMEPRAZOLE [Concomitant]
     Active Substance: OMEPRAZOLE
     Dosage: UNK,1DD1
  12. TEMAZEPAM [Concomitant]
     Active Substance: TEMAZEPAM
     Dosage: 10 MILLIGRAM
  13. CARBASPIRIN [Concomitant]
     Active Substance: CARBASPIRIN
     Dosage: UNK (FOR THE NEXT 21 DAYS 1DD)
  14. CARBASPIRIN [Concomitant]
     Active Substance: CARBASPIRIN
     Dosage: 100 MILLIGRAM (100MG 1DD1)
  15. RISEDRONIC ACID [Concomitant]
     Active Substance: RISEDRONIC ACID
     Dosage: 35 MILLIGRAM (1WD 35MG)
  16. CALCIUM CARBONATE\VITAMIN D [Concomitant]
     Active Substance: CALCIUM CARBONATE\VITAMIN D
     Dosage: UNK (1DD1)
  17. CICLESONIDE [Concomitant]
     Active Substance: CICLESONIDE
     Dosage: UNK (1DD INHALE 1 D)
  18. EZETIMIBE [Concomitant]
     Active Substance: EZETIMIBE
     Indication: Hypercholesterolaemia
     Dosage: 10 MILLIGRAM
     Route: 048
     Dates: start: 2016
  19. INDACATEROL [Concomitant]
     Active Substance: INDACATEROL
     Dosage: UNK (1DD)
  20. PANTOPRAZOLE [Concomitant]
     Active Substance: PANTOPRAZOLE
     Dosage: UNK
  21. CLOPIDOGREL [Concomitant]
     Active Substance: CLOPIDOGREL BISULFATE
     Dosage: UNK
  22. TRAMADOL [Concomitant]
     Active Substance: TRAMADOL
     Dosage: 50 MILLIGRAM (50 MG)
  23. ITRACONAZOLE [Concomitant]
     Active Substance: ITRACONAZOLE
     Dosage: 100 MILLIGRAM (100 MG)
  24. VENTOLIN [Concomitant]
     Active Substance: ALBUTEROL SULFATE
     Dosage: UNK (AS NEEDED 4 INHALATIONS A DAY)
  25. FOSTER [Concomitant]
     Active Substance: BECLOMETHASONE\FORMOTEROL
     Dosage: UNK (2DD INHALE 1 D)
  26. MOMETASONE [Concomitant]
     Active Substance: MOMETASONE
     Dosage: UNK (1DD 50 MCG IN BOTH NOSTRILS)
     Route: 045
  27. FLUTICASONE [Concomitant]
     Active Substance: FLUTICASONE
     Dosage: 1 DROP (1DROP EACH NOSTRIL)
     Route: 045

REACTIONS (21)
  - Dysarthria [Recovering/Resolving]
  - Epistaxis [Unknown]
  - Headache [Unknown]
  - Speech disorder [Recovering/Resolving]
  - Paraesthesia [Recovering/Resolving]
  - Hemiplegia [Recovering/Resolving]
  - Lung consolidation [Recovering/Resolving]
  - Eosinophilia [Recovered/Resolved with Sequelae]
  - Eosinophilic granulomatosis with polyangiitis [Recovered/Resolved with Sequelae]
  - Cerebrovascular accident [Recovering/Resolving]
  - Nervous system disorder [Recovered/Resolved with Sequelae]
  - Drug abuse [Unknown]
  - Lung infiltration [Recovered/Resolved with Sequelae]
  - Hemiparesis [Unknown]
  - Unintentional use for unapproved indication [Unknown]
  - Rebound effect [Unknown]
  - Arteriosclerosis [Unknown]
  - Facial asymmetry [Unknown]
  - C-reactive protein increased [Unknown]
  - Leukocytosis [Unknown]
  - Computerised tomogram thorax abnormal [Unknown]

NARRATIVE: CASE EVENT DATE: 20190831
